FAERS Safety Report 5663862-6 (Version None)
Quarter: 2008Q1

REPORT INFORMATION
  Report Type: 
  Country: None (occurrence: None)
  Receive Date: 20080311
  Receipt Date: 20080220
  Transmission Date: 20080703
  Serious: Yes (Life-Threatening)
  Sender: FDA-Public Use
  Company Number: 2008EU000345

PATIENT
  Age: 55 Year
  Sex: Male

DRUGS (5)
  1. PROGRAF(TACROLIMUS) FORMULATION UNKNOWN [Suspect]
     Indication: HEART TRANSPLANT
     Dosage: 8 MG, UID/QD, ORAL
     Route: 048
  2. PREDNISOLONE [Concomitant]
  3. CELLCEPT [Concomitant]
  4. KEPPRA [Concomitant]
  5. CORTICOSTEROIDS [Concomitant]

REACTIONS (6)
  - ANAEMIA [None]
  - BRAIN ABSCESS [None]
  - DRUG RESISTANCE [None]
  - HYPOGAMMAGLOBULINAEMIA [None]
  - LUNG DISORDER [None]
  - TRANSPLANT REJECTION [None]
